FAERS Safety Report 6718964-X (Version None)
Quarter: 2010Q2

REPORT INFORMATION
  Report Type: 
  Country: None (occurrence: None)
  Receive Date: 20100511
  Receipt Date: 20100423
  Transmission Date: 20101027
  Serious: Yes (Hospitalization, Other)
  Sender: FDA-Public Use
  Company Number: US-BAYER-200939480NA

PATIENT
  Age: 36 Year
  Sex: Female
  Weight: 76 kg

DRUGS (22)
  1. YAZ [Suspect]
     Indication: CONTRACEPTION
     Route: 048
     Dates: start: 20080401, end: 20081001
  2. DIOVAN [Concomitant]
     Dosage: PLAINTIFF FACT SHEET: 1999-PRESENT, MEDICAL RECORDS: 27-JUN-2003
     Route: 065
  3. AMOXICILLIN [Concomitant]
     Route: 065
  4. ASCORBIC ACID [Concomitant]
     Route: 065
     Dates: start: 20090101
  5. HYDROCHLOROTHIAZIDE [Concomitant]
     Indication: HYPOTENSION
     Route: 065
     Dates: start: 19990101
  6. ACYCLOVIR [Concomitant]
     Route: 065
     Dates: start: 20070101
  7. PROCARDIA [Concomitant]
     Route: 065
     Dates: start: 19990101
  8. ATENOLOL [Concomitant]
     Route: 065
     Dates: start: 20000111
  9. TENORETIC 100 [Concomitant]
     Route: 065
     Dates: start: 20000201
  10. ALDOMET [Concomitant]
     Route: 065
     Dates: start: 20000401
  11. ALDOMET [Concomitant]
  12. MELOXICAM [Concomitant]
     Route: 065
     Dates: start: 20090601, end: 20090801
  13. DICLOFENAC [Concomitant]
     Route: 065
  14. LISINOPRIL [Concomitant]
     Route: 065
  15. PAXAL [Concomitant]
     Indication: ANXIETY
     Dosage: 30-JUN-2006 AND 2-OCT-2007
     Route: 065
  16. PROMETHAZINE HCL [Concomitant]
     Indication: NAUSEA
     Route: 065
  17. ZOLPIDEM TARTRATE [Concomitant]
     Indication: SLEEP DISORDER THERAPY
     Route: 065
  18. CLARITIN [Concomitant]
     Route: 065
  19. VALTREX [Concomitant]
     Route: 065
  20. LOVA/OMACOR [Concomitant]
     Route: 065
  21. LOVA/OMACOR [Concomitant]
     Route: 065
  22. LISINOPRIL [Concomitant]
     Indication: HYPOTENSION
     Route: 065

REACTIONS (5)
  - DEEP VEIN THROMBOSIS [None]
  - INJURY [None]
  - OEDEMA PERIPHERAL [None]
  - PAIN IN EXTREMITY [None]
  - PULMONARY EMBOLISM [None]
